FAERS Safety Report 6269945-4 (Version None)
Quarter: 2009Q3

REPORT INFORMATION
  Report Type: 
  Country: None (occurrence: None)
  Receive Date: 20090716
  Receipt Date: 20070720
  Transmission Date: 20100115
  Serious: Yes (Hospitalization, Other)
  Sender: FDA-Public Use
  Company Number: US-ASTRAZENECA-2007UW09692

PATIENT
  Age: 14415 Day
  Sex: Female

DRUGS (33)
  1. SEROQUEL [Suspect]
     Indication: BIPOLAR DISORDER
     Dosage: 75-400MG (THREE TIMES A DAY)
     Route: 048
     Dates: start: 20030101, end: 20060101
  2. SEROQUEL [Suspect]
     Indication: DEPRESSION
     Dosage: 75-400MG (THREE TIMES A DAY)
     Route: 048
     Dates: start: 20030101, end: 20060101
  3. SEROQUEL [Suspect]
     Dosage: 25-400 MG
     Route: 048
     Dates: start: 20030413
  4. SEROQUEL [Suspect]
     Dosage: 25-400 MG
     Route: 048
     Dates: start: 20030413
  5. ZYPREXA [Suspect]
     Dates: start: 20000101, end: 20030101
  6. RISPERDAL [Suspect]
     Dates: start: 20000101, end: 20030101
  7. DEPAKOTE [Concomitant]
     Dosage: 1000-1200 MG
  8. EFFEXOR [Concomitant]
     Dosage: 75-225 MG
     Route: 048
  9. PHENERGAN [Concomitant]
     Dosage: 12.5-50 MG
     Route: 030
  10. GLUCOPHAGE [Concomitant]
     Dosage: 500-1000 MG
     Route: 048
  11. UNIPHYL [Concomitant]
  12. ALLEGRA [Concomitant]
     Route: 048
  13. BENADRYL [Concomitant]
  14. ALBUTEROL [Concomitant]
     Dosage: 2.5 MG QID PRN
  15. ALBUTEROL [Concomitant]
     Route: 055
  16. PULMOCORT TURBHALER [Concomitant]
  17. LIPITOR [Concomitant]
     Dosage: 10-40 MG, DISPENSED
     Route: 048
  18. DEMEROL [Concomitant]
     Dosage: 12.5-50 MG
     Route: 051
  19. NUBAIN [Concomitant]
     Dosage: 10-50 MG
     Route: 030
  20. NUBAIN [Concomitant]
     Dosage: 10 MG
     Route: 051
  21. FROVA [Concomitant]
     Dosage: 2.5-7.5 MG AS NEEDED
  22. ADVAIR PUFFER [Concomitant]
     Dosage: TWICE A DAY
  23. ZESTRIL [Concomitant]
     Dosage: 4-10 MG, DISPENSED
     Route: 048
  24. MAXALT [Concomitant]
     Dosage: 10-30 MG AS NEEDED
     Route: 048
  25. SINGULAIR [Concomitant]
  26. LISINOPRIL [Concomitant]
  27. ZOCOR [Concomitant]
     Route: 048
  28. REQUIP [Concomitant]
     Dosage: 0.25 MG AM, 1 MG QPM, 1 MG AT BED TIME, 25 MG BID
  29. TOPAMAX [Concomitant]
     Dosage: 150-200 MG
  30. PREDNISONE TAB [Concomitant]
     Dosage: 10-60 MG
     Route: 048
  31. AXERT [Concomitant]
  32. CARBATROL [Concomitant]
     Dosage: 200 MG BID, 400 MG PER DAY
  33. MIRTAZAPINE [Concomitant]

REACTIONS (5)
  - CHOLECYSTITIS ACUTE [None]
  - CHOLELITHIASIS [None]
  - HYPERGLYCAEMIA [None]
  - PANCREATITIS ACUTE [None]
  - TYPE 2 DIABETES MELLITUS [None]
